FAERS Safety Report 8312903-6 (Version None)
Quarter: 2012Q2

REPORT INFORMATION
  Report Type: 
  Country: None (occurrence: None)
  Receive Date: 20120424
  Receipt Date: 20120413
  Transmission Date: 20120825
  Serious: Yes (Other)
  Sender: FDA-Public Use
  Company Number: 1202-113

PATIENT
  Age: 82 Year
  Sex: Female

DRUGS (8)
  1. EYLEA [Suspect]
     Dosage: INTRAVITREAL
     Dates: start: 20120119, end: 20120119
  2. BIOTIN (BIOTIN) [Concomitant]
  3. DOXYCYCLINE [Concomitant]
  4. AMLODIPINE [Concomitant]
  5. MULTI-VITAMIN [Concomitant]
  6. GLIMEPIRIDE [Concomitant]
  7. FISH OIL (FISH OIL) [Concomitant]
  8. OMEPRAZOLE [Concomitant]

REACTIONS (2)
  - VISUAL ACUITY REDUCED [None]
  - IRIDOCYCLITIS [None]
